FAERS Safety Report 6491151-9 (Version None)
Quarter: 2009Q4

REPORT INFORMATION
  Report Type: 
  Country: None (occurrence: None)
  Receive Date: 20091207
  Receipt Date: 20091123
  Transmission Date: 20100525
  Serious: Yes (Hospitalization)
  Sender: FDA-Public Use
  Company Number: 8055238

PATIENT
  Age: 76 Year
  Sex: Female
  Weight: 80 kg

DRUGS (1)
  1. CERTOLIZUMAB PEGOL [Suspect]
     Indication: RHEUMATOID ARTHRITIS
     Dosage: 400 MG /M SC
     Route: 058
     Dates: start: 20040602, end: 20091120

REACTIONS (4)
  - BREAST CANCER [None]
  - CONDITION AGGRAVATED [None]
  - HYPERTENSION [None]
  - ISCHAEMIC STROKE [None]
